FAERS Safety Report 17885568 (Version 1)
Quarter: 2020Q2

REPORT INFORMATION
  Report Type: Spontaneous
  Country: DK (occurrence: DK)
  Receive Date: 20200611
  Receipt Date: 20200611
  Transmission Date: 20200714
  Serious: Yes (Disabling)
  Sender: FDA-Public Use
  Company Number: DK-NOVOPROD-732211

PATIENT
  Age: 54 Year
  Sex: Female

DRUGS (3)
  1. ESTROFEM (ESTRADIOL HEMIHYDRATE) [Suspect]
     Active Substance: ESTRADIOL HEMIHYDRATE
     Indication: HOT FLUSH
     Dosage: 1 MG, QD
     Route: 048
     Dates: start: 20150628
  2. AMLODIPINE [Concomitant]
     Active Substance: AMLODIPINE BESYLATE
     Indication: HYPERTENSION
     Dosage: 5 MG, QD
     Route: 048
     Dates: start: 20150720
  3. LOSARTAN/HIDROCLOROTIAZIDA TEVA [Concomitant]
     Indication: HYPERTENSION
     Dosage: 1 DF, QD (STRENGTH :100+12,5MG)
     Route: 048
     Dates: start: 20140604

REACTIONS (3)
  - Uterine cancer [Unknown]
  - Vaginal haemorrhage [Unknown]
  - Hysterosalpingo-oophorectomy [Recovered/Resolved]

NARRATIVE: CASE EVENT DATE: 2019
